FAERS Safety Report 24044467 (Version 2)
Quarter: 2024Q3

REPORT INFORMATION
  Report Type: Spontaneous
  Country: GB (occurrence: None)
  Receive Date: 20240703
  Receipt Date: 20240715
  Transmission Date: 20241016
  Serious: Yes (Hospitalization, Other)
  Sender: ORION
  Company Number: GB-PFIZER INC-PV202400085117

PATIENT
  Age: 78 Year
  Sex: Female

DRUGS (9)
  1. METHOTREXATE [Suspect]
     Active Substance: METHOTREXATE
     Indication: Polymyalgia rheumatica
  2. METHOTREXATE [Suspect]
     Active Substance: METHOTREXATE
     Dosage: 10-20 MG
  3. METHOTREXATE [Suspect]
     Active Substance: METHOTREXATE
     Dosage: LONG-TERM
  4. METHOTREXATE [Suspect]
     Active Substance: METHOTREXATE
     Dosage: 10-20 MG
  5. PREDNISONE [Concomitant]
     Active Substance: PREDNISONE
     Indication: Polymyalgia rheumatica
  6. PREDNISONE [Concomitant]
     Active Substance: PREDNISONE
     Dosage: TAPERING
  7. HYDROXYCHLOROQUINE [Concomitant]
     Active Substance: HYDROXYCHLOROQUINE
     Indication: Arthritis
  8. PREDNISOLONE [Concomitant]
     Active Substance: PREDNISOLONE
  9. PREDNISOLONE [Concomitant]
     Active Substance: PREDNISOLONE
     Dosage: LOW DOSE

REACTIONS (4)
  - Lymphoproliferative disorder [Recovered/Resolved]
  - Diplopia [Recovered/Resolved]
  - Diffuse large B-cell lymphoma [Recovered/Resolved]
  - Product use in unapproved indication [Unknown]
